FAERS Safety Report 7415566-7 (Version None)
Quarter: 2011Q2

REPORT INFORMATION
  Report Type: 
  Country: None (occurrence: None)
  Receive Date: 20110414
  Receipt Date: 20110331
  Transmission Date: 20111010
  Serious: Yes (Life-Threatening, Hospitalization, Disabling, Other)
  Sender: FDA-Public Use
  Company Number: JP-CELGENEUS-087-21880-10102730

PATIENT
  Sex: Female

DRUGS (5)
  1. THYRADIN [Concomitant]
     Dosage: 37.5 MICROGRAM
     Route: 048
     Dates: end: 20101021
  2. METHYCOBAL [Concomitant]
     Indication: PROPHYLAXIS
     Dosage: 1500 MICROGRAM
     Route: 048
     Dates: end: 20101021
  3. DECADRON [Concomitant]
     Indication: MULTIPLE MYELOMA
     Dosage: 13.2 MILLIGRAM
     Route: 051
     Dates: start: 20101015, end: 20101015
  4. OMEPRAL [Concomitant]
     Indication: PROPHYLAXIS
     Dosage: 10 MILLIGRAM
     Route: 048
     Dates: start: 20101015, end: 20101021
  5. REVLIMID [Suspect]
     Indication: MULTIPLE MYELOMA
     Dosage: 10 MILLIGRAM
     Route: 048
     Dates: start: 20101015, end: 20101021

REACTIONS (5)
  - WHITE BLOOD CELL COUNT DECREASED [None]
  - ORAL HERPES [None]
  - PLATELET COUNT DECREASED [None]
  - MULTIPLE MYELOMA [None]
  - RENAL FAILURE [None]
